FAERS Safety Report 8848830 (Version 1)
Quarter: 2012Q4

REPORT INFORMATION
  Report Type: Spontaneous
  Country: US (occurrence: None)
  Receive Date: 20121017
  Receipt Date: 20121017
  Transmission Date: 20130627
  Serious: Yes (Hospitalization)
  Sender: FDA-Public Use
  Company Number: None

PATIENT
  Age: 79 Year
  Sex: Female

DRUGS (1)
  1. SIMVASTATIN [Suspect]
     Indication: HYPERLIPIDEMIA
     Dates: start: 20120721, end: 20121005

REACTIONS (5)
  - Rash [None]
  - Rash [None]
  - Eosinophilia [None]
  - Potentiating drug interaction [None]
  - Drug level increased [None]
